FAERS Safety Report 8202462-0 (Version None)
Quarter: 2012Q1

REPORT INFORMATION
  Report Type: 
  Country: None (occurrence: None)
  Receive Date: 20120312
  Receipt Date: 20100830
  Transmission Date: 20120608
  Serious: No
  Sender: FDA-Public Use
  Company Number: US-ABBOTT-10P-163-0668362-00

PATIENT
  Sex: Male
  Weight: 68.1 kg

DRUGS (1)
  1. DEPAKOTE [Suspect]
     Indication: PRODUCT USED FOR UNKNOWN INDICATION
     Dosage: PATIENT UNABLE TO RECALL
     Dates: start: 19940101, end: 19970101

REACTIONS (2)
  - COORDINATION ABNORMAL [None]
  - VISION BLURRED [None]
